FAERS Safety Report 17119805 (Version 7)
Quarter: 2023Q2

REPORT INFORMATION
  Report Type: Report from Study
  Country: FR (occurrence: FR)
  Receive Date: 20191206
  Receipt Date: 20230413
  Transmission Date: 20230722
  Serious: Yes (Hospitalization, Other)
  Sender: FDA-Public Use
  Company Number: FR-AMGEN-FRACT2019201104

PATIENT
  Age: 63 Year
  Sex: Male
  Weight: 60 kg

DRUGS (9)
  1. PANITUMUMAB [Suspect]
     Active Substance: PANITUMUMAB
     Indication: Colorectal cancer metastatic
     Dosage: 360 MILLIGRAM., AT CYCLE 1
     Route: 042
     Dates: start: 20191126
  2. ELOXATIN [Suspect]
     Active Substance: OXALIPLATIN
     Indication: Colorectal cancer metastatic
     Dosage: 141 MILLIGRAM, AT CYCLE 1
     Route: 042
     Dates: start: 20191126
  3. LEVOLEUCOVORIN CALCIUM [Suspect]
     Active Substance: LEVOLEUCOVORIN CALCIUM
     Indication: Colorectal cancer metastatic
     Dosage: 663 MILLIGRAM, AT CYCLE 1
     Route: 042
     Dates: start: 20191126
  4. IRINOTECAN [Suspect]
     Active Substance: IRINOTECAN
     Indication: Colorectal cancer metastatic
     Dosage: 250 MILLIGRAM, AT CYCLE 1
     Route: 042
     Dates: start: 20191126
  5. FLUOROURACIL [Suspect]
     Active Substance: FLUOROURACIL
     Indication: Colorectal cancer metastatic
     Dosage: 663 MILLIGRAM, AT CYCLE 1 (BOLUS)
     Route: 040
     Dates: start: 20191126
  6. FLUOROURACIL [Suspect]
     Active Substance: FLUOROURACIL
     Dosage: 3980 MILLIGRAM, AT CYCLE 1 (CONTINUOUS)
     Route: 041
     Dates: start: 20191126
  7. TRAMADOL HYDROCHLORIDE [Concomitant]
     Active Substance: TRAMADOL HYDROCHLORIDE
     Indication: Abdominal pain
     Dosage: 150 MILLIGRAM
     Dates: start: 201911
  8. DOLIPRANE [Concomitant]
     Active Substance: ACETAMINOPHEN
     Indication: Abdominal pain
     Dosage: 3 GRAM
     Dates: start: 201911
  9. MOVICOL [Concomitant]
     Active Substance: POLYETHYLENE GLYCOL 3350\POTASSIUM CHLORIDE\SODIUM BICARBONATE\SODIUM CHLORIDE
     Indication: Abdominal pain
     Dosage: 1 MILLIGRAM
     Route: 048
     Dates: start: 201911

REACTIONS (2)
  - Hypotension [Recovered/Resolved]
  - Accidental overdose [Recovered/Resolved]

NARRATIVE: CASE EVENT DATE: 20191126
